FAERS Safety Report 17941744 (Version 1)
Quarter: 2020Q2

REPORT INFORMATION
  Report Type: Spontaneous
  Country: US (occurrence: US)
  Receive Date: 20200624
  Receipt Date: 20200624
  Transmission Date: 20200714
  Serious: Yes (Hospitalization)
  Sender: FDA-Public Use
  Company Number: None

PATIENT
  Age: 61 Year
  Sex: Male

DRUGS (34)
  1. RETACRIT [Suspect]
     Active Substance: EPOETIN ALFA-EPBX
     Indication: PLASMA CELL MYELOMA
     Dosage: ?          OTHER DOSE:20,000UNITS;OTHER FREQUENCY:Q14D;?
     Dates: start: 20200509
  2. ATORVASTATIN [Concomitant]
     Active Substance: ATORVASTATIN
  3. CARVEDILOL. [Concomitant]
     Active Substance: CARVEDILOL
  4. DEXAMETHASON [Concomitant]
     Active Substance: DEXAMETHASONE
  5. NIFEDIPINE. [Concomitant]
     Active Substance: NIFEDIPINE
  6. SERTRALINE [Concomitant]
     Active Substance: SERTRALINE HYDROCHLORIDE
  7. ALLOPURINOL. [Concomitant]
     Active Substance: ALLOPURINOL
  8. FAMOTIDINE. [Concomitant]
     Active Substance: FAMOTIDINE
  9. RENA-VITE [Concomitant]
     Active Substance: ASCORBIC ACID\BIOTIN\CALCIUM PANTOTHENATE\CYANOCOBALAMIN\FOLIC ACID\NIACINAMIDE\PYRIDOXINE HYDROCHLORIDE\RIBOFLAVIN\THIAMINE MONONITRATE
  10. SERTRALINE [Concomitant]
     Active Substance: SERTRALINE HYDROCHLORIDE
  11. ALBUTEROL AER [Concomitant]
  12. CLOPIDOGREL [Concomitant]
     Active Substance: CLOPIDOGREL BISULFATE
  13. FUROSEMIDE. [Concomitant]
     Active Substance: FUROSEMIDE
  14. IRON [Concomitant]
     Active Substance: IRON
  15. CLONIDINE. [Concomitant]
     Active Substance: CLONIDINE
  16. FOLIC ACID. [Concomitant]
     Active Substance: FOLIC ACID
  17. GABAPENTIN. [Concomitant]
     Active Substance: GABAPENTIN
  18. TORSEMIDE. [Concomitant]
     Active Substance: TORSEMIDE
  19. AMLODIPINE [Concomitant]
     Active Substance: AMLODIPINE BESYLATE
  20. CEFUROXIME. [Concomitant]
     Active Substance: CEFUROXIME
  21. FEROSUL [Concomitant]
     Active Substance: FERROUS SULFATE
  22. HYDRO/APAP [Concomitant]
     Active Substance: ACETAMINOPHEN\HYDROCODONE
  23. WIXELA INHUB [Concomitant]
     Active Substance: FLUTICASONE PROPIONATE\SALMETEROL XINAFOATE
  24. DOXAZOSIN [Concomitant]
     Active Substance: DOXAZOSIN MESYLATE
  25. LANTUS SOLOS [Concomitant]
  26. PENTOXIFYLLI [Concomitant]
  27. CIPROFLOXACN [Concomitant]
     Active Substance: CIPROFLOXACIN
  28. DOXYCYCL HYC [Concomitant]
  29. MONTELUKAST [Concomitant]
     Active Substance: MONTELUKAST SODIUM
  30. PANTOPRAZOLE [Concomitant]
     Active Substance: PANTOPRAZOLE
  31. BUDESONIDE. [Concomitant]
     Active Substance: BUDESONIDE
  32. FLUTICASONE. [Concomitant]
     Active Substance: FLUTICASONE
  33. METRONIDAZOL [Concomitant]
     Active Substance: METRONIDAZOLE
  34. SOD CHLORIDE [Suspect]
     Active Substance: SODIUM CHLORIDE

REACTIONS (2)
  - Haemoglobin increased [None]
  - Haematocrit increased [None]

NARRATIVE: CASE EVENT DATE: 20200615
